FAERS Safety Report 19759812 (Version 1)
Quarter: 2021Q3

REPORT INFORMATION
  Report Type: Spontaneous
  Country: US (occurrence: US)
  Receive Date: 20210830
  Receipt Date: 20210830
  Transmission Date: 20211014
  Serious: No
  Sender: FDA-Public Use
  Company Number: US-SA-2021SA281193

PATIENT
  Age: 60 Year
  Sex: Female

DRUGS (2)
  1. AUBAGIO [Suspect]
     Active Substance: TERIFLUNOMIDE
     Indication: MULTIPLE SCLEROSIS
     Dosage: 14 MG, QD
     Route: 048
     Dates: start: 20170202
  2. DALFAMPRIDINE. [Concomitant]
     Active Substance: DALFAMPRIDINE

REACTIONS (2)
  - Abdominal discomfort [Not Recovered/Not Resolved]
  - Fatigue [Not Recovered/Not Resolved]
